FAERS Safety Report 9695057 (Version 3)
Quarter: 2013Q4

REPORT INFORMATION
  Report Type: Spontaneous
  Country: JP (occurrence: JP)
  Receive Date: 20131119
  Receipt Date: 20131227
  Transmission Date: 20140711
  Serious: Yes (Death)
  Sender: FDA-Public Use
  Company Number: JP-CELGENEUS-087-21660-13112809

PATIENT
  Age: 73 Year
  Sex: Male
  Weight: 50 kg

DRUGS (5)
  1. ABRAXANE [Suspect]
     Indication: GASTRIC CANCER
     Dosage: 350 MILLIGRAM
     Route: 041
     Dates: start: 20131030, end: 20131030
  2. LASIX [Concomitant]
     Indication: ASCITES
     Dosage: 40 MILLIGRAM
     Route: 041
     Dates: start: 20131001, end: 20131103
  3. OMEPRAZOLE SODIUM [Concomitant]
     Indication: PROPHYLAXIS
     Dosage: 40 MILLIGRAM
     Route: 041
     Dates: start: 20131022, end: 20131103
  4. SANDOSTATIN [Concomitant]
     Indication: PRODUCT USED FOR UNKNOWN INDICATION
     Dosage: 400 MICROGRAM
     Route: 058
     Dates: start: 20131026, end: 20131103
  5. MORPHINE HYDROCHLORIDE HYDRATE [Concomitant]
     Indication: PAIN
     Dosage: 2.4 GRAM
     Route: 058
     Dates: start: 20131030, end: 20131103

REACTIONS (2)
  - Bone marrow failure [Fatal]
  - Gastric cancer [Fatal]
